FAERS Safety Report 14198805 (Version 1)
Quarter: 2017Q4

REPORT INFORMATION
  Report Type: Spontaneous
  Country: US (occurrence: None)
  Receive Date: 20171116
  Receipt Date: 20171116
  Transmission Date: 20180321
  Serious: Yes (Death, Hospitalization)
  Sender: FDA-Public Use
  Company Number: None

PATIENT
  Age: 4 Year
  Sex: Male
  Weight: 13.4 kg

DRUGS (7)
  1. CYCLOPHOSPHAMIDE. [Suspect]
     Active Substance: CYCLOPHOSPHAMIDE
     Dates: end: 20170713
  2. VINCRISTINE SULFATE. [Concomitant]
     Active Substance: VINCRISTINE SULFATE
     Dates: end: 20170802
  3. HYDROCORTISONE. [Suspect]
     Active Substance: HYDROCORTISONE
     Dates: end: 20170727
  4. CYTARABINE. [Suspect]
     Active Substance: CYTARABINE
     Dates: end: 20170723
  5. MERCAPTOPURINE. [Suspect]
     Active Substance: MERCAPTOPURINE
     Dates: end: 20170727
  6. METHOTREXATE. [Suspect]
     Active Substance: METHOTREXATE
     Dates: end: 20170727
  7. ONCASPAR [Suspect]
     Active Substance: PEGASPARGASE
     Dates: end: 20170727

REACTIONS (15)
  - Brain oedema [None]
  - Pyrexia [None]
  - Facial paralysis [None]
  - Neutrophil count increased [None]
  - Leukoencephalopathy [None]
  - Necrosis [None]
  - West Nile virus test positive [None]
  - Mental status changes [None]
  - Encephalitis [None]
  - Areflexia [None]
  - Encephalitis brain stem [None]
  - West Nile viral infection [None]
  - Muscular weakness [None]
  - Unresponsive to stimuli [None]
  - CSF test abnormal [None]

NARRATIVE: CASE EVENT DATE: 20170804
